FAERS Safety Report 5814672-8 (Version None)
Quarter: 2008Q3

REPORT INFORMATION
  Report Type: 
  Country: None (occurrence: None)
  Receive Date: 20080718
  Receipt Date: 20080309
  Transmission Date: 20090109
  Serious: No
  Sender: FDA-Public Use
  Company Number: US-KINGPHARMUSA00001-K200800302

PATIENT

DRUGS (2)
  1. LEVOXYL [Suspect]
     Indication: HYPOTHYROIDISM
     Dates: start: 19950101
  2. LEVOXYL [Suspect]
     Dosage: UNK, UNK
     Route: 065

REACTIONS (3)
  - DRUG INEFFECTIVE [None]
  - LETHARGY [None]
  - WEIGHT INCREASED [None]
